FAERS Safety Report 6926734 (Version 2)
Quarter: 2013Q1

REPORT INFORMATION
  Report Type: Spontaneous
  Country: NO (occurrence: None)
  Receive Date: 20090219
  Receipt Date: 20130108
  Transmission Date: 20140127
  Serious: Yes (Other)
  Sender: FDA-Public Use
  Company Number: 2009AP000540

PATIENT
  Age: 50 Year
  Sex: Female

DRUGS (5)
  1. CARBAMAZEPINE [Suspect]
     Indication: EPILEPSY
  2. LAMOTRIGINE [Suspect]
     Indication: EPILEPSY
  3. OXCARBAZEPINE [Suspect]
     Indication: EPILEPSY
  4. PHENOBARBITAL [Concomitant]
     Indication: EPILEPSY
  5. PHENYTOIN [Suspect]

REACTIONS (4)
  - Drug hypersensitivity [None]
  - Rash [None]
  - Pyrexia [None]
  - Stevens-Johnson syndrome [None]
